FAERS Safety Report 5837373-9 (Version None)
Quarter: 2008Q3

REPORT INFORMATION
  Report Type: 
  Country: None (occurrence: None)
  Receive Date: 20080807
  Receipt Date: 20080804
  Transmission Date: 20090109
  Serious: Yes (Death, Life-Threatening)
  Sender: FDA-Public Use
  Company Number: US-WYE-H04846908

PATIENT
  Sex: Female
  Weight: 74.91 kg

DRUGS (6)
  1. ZOSYN [Suspect]
     Indication: INFECTION
     Dosage: 4.5 GM EVERY 6 TO 8 HOURS
     Route: 042
     Dates: start: 20080520, end: 20080523
  2. ZOSYN [Suspect]
     Dosage: 4.5 GM EVERY 6 TO 8 HOURS
     Route: 042
     Dates: start: 20080625, end: 20080627
  3. NEULASTA [Suspect]
     Dosage: UNKNOWN
     Route: 065
     Dates: end: 20080101
  4. PROTONIX [Suspect]
     Dosage: UNKNOWN
     Route: 065
     Dates: end: 20080101
  5. TYGACIL [Suspect]
     Dosage: UNKNOWN
     Route: 065
  6. COLISTIN SULFATE [Suspect]
     Dosage: UNKNOWN
     Route: 065

REACTIONS (2)
  - MULTI-ORGAN FAILURE [None]
  - THROMBOCYTOPENIA [None]
